FAERS Safety Report 17660200 (Version 1)
Quarter: 2020Q2

REPORT INFORMATION
  Report Type: Spontaneous
  Country: FR (occurrence: FR)
  Receive Date: 20200413
  Receipt Date: 20200413
  Transmission Date: 20200713
  Serious: Yes (Other)
  Sender: FDA-Public Use
  Company Number: FR-PFIZER INC-2020144798

PATIENT
  Age: 64 Year
  Sex: Male
  Weight: 83 kg

DRUGS (20)
  1. ZAVEDOS [Suspect]
     Active Substance: IDARUBICIN
     Indication: LEUKAEMIA
     Dosage: 24 MG, SINGLE
     Route: 042
     Dates: start: 20191219, end: 20191219
  2. CYTARABINE. [Suspect]
     Active Substance: CYTARABINE
     Indication: LEUKAEMIA
     Dosage: 5940 MG, SINGLE
     Route: 042
     Dates: start: 20191219, end: 20191219
  3. CYTARABINE. [Suspect]
     Active Substance: CYTARABINE
     Dosage: 15 MG, SINGLE
     Route: 037
     Dates: start: 20191219, end: 20191219
  4. KIDROLASE [Suspect]
     Active Substance: ASPARAGINASE
     Indication: LEUKAEMIA
     Dosage: 11900 IU, 1X/DAY
     Route: 042
  5. METHOTREXATE MYLAN [Suspect]
     Active Substance: METHOTREXATE SODIUM
     Dosage: 5940 MG, SINGLE
     Route: 042
     Dates: start: 20191219, end: 20191219
  6. FORADIL [Concomitant]
     Active Substance: FORMOTEROL FUMARATE
     Dosage: UNK
  7. PANTOPRAZOLE [Concomitant]
     Active Substance: PANTOPRAZOLE
     Dosage: UNK
  8. NISIS [Concomitant]
     Active Substance: VALSARTAN
     Dosage: UNK
  9. DEPO-MEDROL [Suspect]
     Active Substance: METHYLPREDNISOLONE ACETATE
     Indication: LEUKAEMIA
     Dosage: 40 MG, SINGLE
     Route: 037
     Dates: start: 20191219, end: 20191219
  10. UROREC [Concomitant]
     Active Substance: SILODOSIN
     Dosage: UNK
  11. METHOTREXATE BIODIM [Suspect]
     Active Substance: METHOTREXATE
     Indication: LEUKAEMIA
     Dosage: 5940 MG, SINGLE
     Route: 042
     Dates: start: 20191219, end: 20191219
  12. ONDANSETRON ACCORD [Suspect]
     Active Substance: ONDANSETRON
     Indication: PROPHYLAXIS OF NAUSEA AND VOMITING
     Dosage: 8 MG, SINGLE
     Route: 042
     Dates: start: 20191219, end: 20191219
  13. SKENAN [Concomitant]
     Active Substance: MORPHINE SULFATE
     Dosage: UNK
  14. LYRICA [Concomitant]
     Active Substance: PREGABALIN
     Dosage: UNK
  15. METHOTREXATE MYLAN [Suspect]
     Active Substance: METHOTREXATE SODIUM
     Indication: LEUKAEMIA
     Dosage: 5940 MG, SINGLE
     Route: 042
     Dates: start: 20191219, end: 20191219
  16. ONDANSETRON ACCORD [Suspect]
     Active Substance: ONDANSETRON
     Dosage: 5940 MG, SINGLE
     Route: 042
     Dates: start: 20191219, end: 20191219
  17. METHOTREXATE BIODIM [Suspect]
     Active Substance: METHOTREXATE
     Route: 037
     Dates: start: 20191219, end: 20191219
  18. ACTISKENAN [Concomitant]
     Active Substance: MORPHINE SULFATE
     Dosage: UNK
  19. THEOSTAT [Concomitant]
     Active Substance: THEOPHYLLINE ANHYDROUS
     Dosage: UNK
  20. PARACETAMOL [Concomitant]
     Active Substance: ACETAMINOPHEN
     Dosage: UNK

REACTIONS (2)
  - Hepatocellular injury [Recovered/Resolved]
  - Cholestasis [Recovered/Resolved]

NARRATIVE: CASE EVENT DATE: 20191226
